FAERS Safety Report 6119516-5 (Version None)
Quarter: 2009Q1

REPORT INFORMATION
  Report Type: 
  Country: None (occurrence: None)
  Receive Date: 20090316
  Receipt Date: 20090306
  Transmission Date: 20090719
  Serious: Yes (Hospitalization)
  Sender: FDA-Public Use
  Company Number: A0773216A

PATIENT
  Age: 56 Year
  Sex: Male
  Weight: 96.4 kg

DRUGS (9)
  1. AVANDIA [Suspect]
     Indication: DIABETES MELLITUS
     Dosage: 8MG PER DAY
     Route: 048
     Dates: start: 20031105, end: 20071108
  2. AVANDAMET [Suspect]
     Indication: DIABETES MELLITUS
     Route: 048
  3. INSULIN [Concomitant]
  4. VARDENAFIL [Concomitant]
  5. OMEPRAZOLE [Concomitant]
  6. LEVOTHYROXINE [Concomitant]
  7. POTASSIUM CHLORIDE [Concomitant]
  8. HYDROCODONE [Concomitant]
  9. IBUPROFEN TABLETS [Concomitant]

REACTIONS (2)
  - CARDIAC FAILURE CONGESTIVE [None]
  - SUPRAVENTRICULAR TACHYCARDIA [None]
